FAERS Safety Report 5815599-8 (Version None)
Quarter: 2008Q3

REPORT INFORMATION
  Report Type: 
  Country: None (occurrence: None)
  Receive Date: 20080716
  Receipt Date: 20080703
  Transmission Date: 20090109
  Serious: Yes (Hospitalization)
  Sender: FDA-Public Use
  Company Number: 236396J08USA

PATIENT
  Age: 45 Year
  Sex: Female
  Weight: 113.3993 kg

DRUGS (7)
  1. REBIF [Suspect]
     Indication: MULTIPLE SCLEROSIS
     Dosage: 44 MCG, 3 IN 1 WEEKS, SUBCUTANEOUS
     Route: 058
     Dates: start: 20070705
  2. INDERAL LA [Concomitant]
  3. CELEXA [Concomitant]
  4. FLEXERIL [Concomitant]
  5. ADVAIR (SERETIDE) [Concomitant]
  6. COMBIVENT [Concomitant]
  7. SIMVASTATIN [Concomitant]

REACTIONS (13)
  - ANOREXIA [None]
  - BALANCE DISORDER [None]
  - BLADDER DISORDER [None]
  - CHEST PAIN [None]
  - DEPRESSION [None]
  - DIARRHOEA [None]
  - DIZZINESS [None]
  - DYSPNOEA [None]
  - EYE ROLLING [None]
  - FALL [None]
  - GAIT DISTURBANCE [None]
  - MEMORY IMPAIRMENT [None]
  - TREMOR [None]
